FAERS Safety Report 8506672 (Version 2)
Quarter: 2012Q4

REPORT INFORMATION
  Report Type: 
  Country: DE (occurrence: IT)
  Receive Date: 20120412
  Receipt Date: 20120921
  Transmission Date: 20130627
  Serious: Yes (Other)
  Sender: FDA-Public Use
  Company Number: IT-BRISTOL-MYERS SQUIBB COMPANY-16508178

PATIENT
  Age: 38 Year
  Sex: Female

DRUGS (1)
  1. ABILIFY TABS 10 MG [Suspect]
     Dosage: 1 tabs
     Route: 048

REACTIONS (2)
  - Pregnancy [Recovered/Resolved]
  - Abortion spontaneous [Unknown]
